FAERS Safety Report 9770142 (Version 2)
Quarter: 2013Q4

REPORT INFORMATION
  Report Type: Spontaneous
  Country: US (occurrence: US)
  Receive Date: 20131218
  Receipt Date: 20131218
  Transmission Date: 20140711
  Serious: No
  Sender: FDA-Public Use
  Company Number: US-VERTEX PHARMACEUTICALS INC-AE-2011-000988

PATIENT
  Age: 49 Year
  Sex: Female
  Weight: 68.18 kg

DRUGS (20)
  1. INCIVEK [Suspect]
     Indication: HEPATITIS C
     Route: 048
     Dates: start: 20110818
  2. PEGASYS [Concomitant]
     Indication: HEPATITIS C
     Route: 058
     Dates: start: 20110615
  3. RIBAVIRIN [Concomitant]
     Indication: HEPATITIS C
     Route: 048
     Dates: start: 20110615
  4. LORAZEPAM [Concomitant]
     Indication: ANXIETY
  5. VENTOLIN INHALER [Concomitant]
     Indication: DYSPNOEA
  6. DIOVAN [Concomitant]
     Indication: HYPERTENSION
  7. HYDROCHLOROTHIAZIDE [Concomitant]
     Indication: HYPERTENSION
  8. TEGRETOL [Concomitant]
     Indication: BIPOLAR I DISORDER
  9. ATIVAN [Concomitant]
     Indication: ANXIETY
  10. HYDROCODONE WITH TYELENOL [Concomitant]
     Indication: PAIN
  11. ADVAIR [Concomitant]
     Indication: CHRONIC OBSTRUCTIVE PULMONARY DISEASE
  12. ZOLPIDEM [Concomitant]
  13. FLUCANOZOLE [Concomitant]
  14. VALSARTAN [Concomitant]
  15. METOPROLOL SUCCINATE [Concomitant]
  16. NAPROXEN [Concomitant]
  17. ALBUTEROL SULFATE [Concomitant]
     Indication: CHRONIC OBSTRUCTIVE PULMONARY DISEASE
  18. CARBAMAZEPINE [Concomitant]
  19. TERCONAZOLE [Concomitant]
  20. AZITHROMYCIN [Concomitant]

REACTIONS (1)
  - Bronchitis [Recovered/Resolved]
